FAERS Safety Report 21090955 (Version 1)
Quarter: 2022Q3

REPORT INFORMATION
  Report Type: Spontaneous
  Country: FR (occurrence: FR)
  Receive Date: 20220716
  Receipt Date: 20220716
  Transmission Date: 20221027
  Serious: Yes (Other)
  Sender: FDA-Public Use
  Company Number: None

PATIENT
  Age: 16 Year
  Sex: Female

DRUGS (4)
  1. QUETIAPINE [Suspect]
     Active Substance: QUETIAPINE
     Indication: Affective disorder
     Dosage: SEE NARRATIVE
     Route: 065
     Dates: end: 20220520
  2. LAMOTRIGINE [Suspect]
     Active Substance: LAMOTRIGINE
     Indication: Affective disorder
     Dosage: UNIT DOSE: 75 MG, FREQUENCY TIME : 1 DAY
     Dates: start: 20220520, end: 20220520
  3. LAMOTRIGINE [Suspect]
     Active Substance: LAMOTRIGINE
     Dosage: UNIT DOSE: 100 MG, FREQUENCY TIME : 1 DAY
     Dates: start: 20220517, end: 20220519
  4. DROSPIRENONE [Suspect]
     Active Substance: DROSPIRENONE
     Indication: Dysmenorrhoea
     Dosage: 4 MILLIGRAM DAILY; 4 MG/DAY CONTINUOUS, STRENGTH: 4 MG
     Dates: end: 20220520

REACTIONS (3)
  - Blood creatine phosphokinase increased [Recovered/Resolved]
  - Transaminases increased [Recovered/Resolved]
  - Rhabdomyolysis [Recovered/Resolved]

NARRATIVE: CASE EVENT DATE: 20220520
